FAERS Safety Report 8375220-4 (Version None)
Quarter: 2012Q2

REPORT INFORMATION
  Report Type: 
  Country: None (occurrence: None)
  Receive Date: 20120522
  Receipt Date: 20120510
  Transmission Date: 20120825
  Serious: Yes (Life-Threatening, Hospitalization)
  Sender: FDA-Public Use
  Company Number: FR-BRISTOL-MYERS SQUIBB COMPANY-16594194

PATIENT
  Age: 59 Year
  Sex: Male

DRUGS (5)
  1. GLUCOPHAGE [Suspect]
     Route: 048
     Dates: start: 20000101, end: 20120302
  2. ATORVASTATIN [Concomitant]
     Dosage: LONG TIME ACTING
  3. ALLOPURINOL [Concomitant]
     Dates: start: 20100101
  4. ONGLYZA [Concomitant]
     Dates: start: 20110701
  5. ATACAND [Concomitant]
     Dates: start: 20110701

REACTIONS (2)
  - CARDIAC ARREST [None]
  - LACTIC ACIDOSIS [None]
